FAERS Safety Report 5473814-7 (Version None)
Quarter: 2007Q4

REPORT INFORMATION
  Report Type: 
  Country: None (occurrence: None)
  Receive Date: 20071001
  Receipt Date: 20061204
  Transmission Date: 20080405
  Serious: Yes (Other)
  Sender: FDA-Public Use
  Company Number: US-PFIZER INC-2007061368

PATIENT
  Sex: Female

DRUGS (2)
  1. CELEBREX [Suspect]
     Indication: OSTEOARTHRITIS
  2. ARICEPT [Concomitant]

REACTIONS (7)
  - AMNESIA [None]
  - INTERVERTEBRAL DISC PROTRUSION [None]
  - KNEE ARTHROPLASTY [None]
  - MUSCLE SPASMS [None]
  - MUSCULOSKELETAL DISCOMFORT [None]
  - ROTATOR CUFF SYNDROME [None]
  - SURGERY [None]
